FAERS Safety Report 5201607-4 (Version None)
Quarter: 2006Q4

REPORT INFORMATION
  Report Type: 
  Country: None (occurrence: None)
  Receive Date: 20061006
  Receipt Date: 20060308
  Transmission Date: 20070319
  Serious: Yes (Hospitalization, Other)
  Sender: FDA-Public Use
  Company Number: 200610682BWH

PATIENT
  Age: 70 Year
  Sex: Male

DRUGS (1)
  1. CIPRO XR [Suspect]

REACTIONS (2)
  - DEAFNESS [None]
  - RENAL FAILURE [None]
